FAERS Safety Report 16514973 (Version 1)
Quarter: 2019Q3

REPORT INFORMATION
  Report Type: Report from Study
  Country: None (occurrence: GR)
  Receive Date: 20190702
  Receipt Date: 20190702
  Transmission Date: 20191004
  Serious: Yes (Other)
  Sender: FDA-Public Use
  Company Number: GR-ABBVIE-19K-066-2839192-00

PATIENT
  Age: 74 Year
  Sex: Male
  Weight: 96 kg

DRUGS (5)
  1. MANTOMED [Concomitant]
     Indication: DEMENTIA
     Route: 048
  2. CLONOTRIL [Concomitant]
     Active Substance: CLONAZEPAM
     Indication: RESTLESS LEGS SYNDROME
     Route: 048
  3. DUODOPA [Suspect]
     Active Substance: CARBIDOPA\LEVODOPA
     Indication: PARKINSON^S DISEASE
     Dosage: MORNING DOSE: 13 ML;??CONTINUOUS RATE: 2.2 ML/H;??EXTRA DOSE: 1.0 ML
     Route: 050
     Dates: start: 20180605
  4. EXELON [Concomitant]
     Active Substance: RIVASTIGMINE TARTRATE
     Indication: DEMENTIA
     Route: 062
  5. MIRAPEXIN [Concomitant]
     Active Substance: PRAMIPEXOLE
     Indication: PARKINSON^S DISEASE
     Dosage: 0.18 MG IN THE MORNING; 0.18 MG AT NOON; 0.36 MG AT NIGHT
     Route: 048

REACTIONS (1)
  - Retinal detachment [Recovered/Resolved]

NARRATIVE: CASE EVENT DATE: 20190627
